FAERS Safety Report 10144639 (Version 1)
Quarter: 2014Q2

REPORT INFORMATION
  Report Type: Spontaneous
  Country: US (occurrence: US)
  Receive Date: 20140430
  Receipt Date: 20140430
  Transmission Date: 20141212
  Serious: Yes (Other)
  Sender: FDA-Public Use
  Company Number: US-SANOFI-AVENTIS-2013SA079130

PATIENT
  Age: 60 Year
  Sex: Male
  Weight: 60 kg

DRUGS (8)
  1. LOVENOX [Suspect]
     Indication: EMBOLIC STROKE
     Route: 065
     Dates: start: 20130402
  2. ASPIRIN [Concomitant]
  3. ZETIA [Concomitant]
  4. LISINOPRIL [Concomitant]
  5. PLAVIX [Concomitant]
  6. METOPROLOL [Concomitant]
  7. PROTONIX [Concomitant]
  8. PRAVACHOL [Concomitant]

REACTIONS (3)
  - Injection site haemorrhage [Recovered/Resolved]
  - Wound [Unknown]
  - Injection site bruising [Unknown]
